FAERS Safety Report 13135913 (Version 1)
Quarter: 2017Q1

REPORT INFORMATION
  Report Type: Spontaneous
  Country: CH (occurrence: CH)
  Receive Date: 20170120
  Receipt Date: 20170120
  Transmission Date: 20170428
  Serious: Yes (Life-Threatening, Hospitalization, Other)
  Sender: FDA-Public Use
  Company Number: CH-BRISTOL-MYERS SQUIBB COMPANY-BMS-2017-002204

PATIENT
  Age: 75 Year
  Sex: Male
  Weight: 74.3 kg

DRUGS (2)
  1. LITALIR [Suspect]
     Active Substance: HYDROXYUREA
     Indication: MYELOPROLIFERATIVE NEOPLASM
     Dosage: UNK
     Route: 048
     Dates: start: 201611, end: 20161228
  2. LITALIR [Suspect]
     Active Substance: HYDROXYUREA
     Indication: THROMBOCYTOSIS
     Route: 065

REACTIONS (16)
  - Coronary artery bypass [Unknown]
  - Weaning failure [Unknown]
  - Cardiac failure [Unknown]
  - Acute myocardial infarction [Unknown]
  - Leukopenia [Recovered/Resolved]
  - Blood creatinine increased [Unknown]
  - Thrombocytopenia [Recovered/Resolved]
  - Packed red blood cell transfusion [Unknown]
  - Drug administration error [Recovered/Resolved]
  - Respiratory disorder [Unknown]
  - Transfusion [Unknown]
  - Accidental overdose [Recovered/Resolved]
  - Gastrointestinal tube insertion [Unknown]
  - Coronary artery disease [Unknown]
  - Procedural haemorrhage [Unknown]
  - Platelet transfusion [Unknown]

NARRATIVE: CASE EVENT DATE: 20161222
